FAERS Safety Report 5266743-5 (Version None)
Quarter: 2007Q1

REPORT INFORMATION
  Report Type: 
  Country: None (occurrence: None)
  Receive Date: 20070305
  Receipt Date: 20070219
  Transmission Date: 20070707
  Serious: Yes (Other)
  Sender: FDA-Public Use
  Company Number: B0460060A

PATIENT
  Age: 10 Year
  Sex: Male

DRUGS (3)
  1. FLUTICASONE PROPIONATE [Suspect]
     Indication: ASTHMA
     Dosage: 220 MCG/ TWICE PER DAY / INHALED
     Route: 055
  2. FLUTICASONE PROPIONATE [Suspect]
     Indication: ASTHMA
     Dosage: INTRANASAL
     Route: 045
  3. MONTELUKAST SODIUM [Concomitant]

REACTIONS (6)
  - ADRENAL SUPPRESSION [None]
  - DIZZINESS [None]
  - FATIGUE [None]
  - HUNGER [None]
  - HYPOGLYCAEMIA [None]
  - TREMOR [None]
